FAERS Safety Report 9323208 (Version 1)
Quarter: 2013Q2

REPORT INFORMATION
  Report Type: Spontaneous
  Country: HK (occurrence: HK)
  Receive Date: 20130603
  Receipt Date: 20130603
  Transmission Date: 20140414
  Serious: Yes (Death)
  Sender: FDA-Public Use
  Company Number: HK-ROCHE-1221898

PATIENT
  Sex: Female
  Weight: 69.4 kg

DRUGS (8)
  1. TOCILIZUMAB [Suspect]
     Indication: RHEUMATOID ARTHRITIS
     Dosage: TOTAL MONTHLY DOSE - 480 MG.  FOUR MOST RECENT DOSES WERE RECEIVED ON 18/OCT/2012, 29/NOV/2012, 10/J
     Route: 042
     Dates: start: 201101, end: 20130221
  2. METHOTREXATE [Concomitant]
     Route: 065
  3. FOLIC ACID [Concomitant]
     Route: 065
  4. FAMOTIDINE [Concomitant]
     Route: 065
  5. ADALAT RETARD [Concomitant]
     Route: 065
  6. ZOCOR [Concomitant]
     Route: 065
  7. THYROXINE [Concomitant]
     Route: 065
  8. THYROXINE [Concomitant]
     Route: 065

REACTIONS (8)
  - Lung infection [Fatal]
  - Pneumonia [Fatal]
  - Sepsis [Fatal]
  - Empyema [Fatal]
  - Infection [Fatal]
  - Renal failure acute [Fatal]
  - Shock [Fatal]
  - Respiratory failure [Fatal]
